FAERS Safety Report 18159251 (Version 2)
Quarter: 2020Q3

REPORT INFORMATION
  Report Type: Spontaneous
  Country: GB (occurrence: GB)
  Receive Date: 20200818
  Receipt Date: 20200819
  Transmission Date: 20201103
  Serious: No
  Sender: FDA-Public Use
  Company Number: GB-BEH-2020121178

PATIENT
  Age: 33 Year
  Sex: Female
  Weight: 56 kg

DRUGS (4)
  1. RHOPHYLAC [Suspect]
     Active Substance: HUMAN RHO(D) IMMUNE GLOBULIN
     Indication: PROPHYLAXIS
  2. RHOPHYLAC [Suspect]
     Active Substance: HUMAN RHO(D) IMMUNE GLOBULIN
     Indication: PROPHYLAXIS
  3. RHOPHYLAC [Suspect]
     Active Substance: HUMAN RHO(D) IMMUNE GLOBULIN
     Indication: PROPHYLAXIS
     Dosage: 1500 INTERNATIONAL UNIT, SINGLE
     Route: 030
     Dates: start: 20200806, end: 20200806
  4. RHOPHYLAC [Suspect]
     Active Substance: HUMAN RHO(D) IMMUNE GLOBULIN
     Indication: PROPHYLAXIS
     Dosage: 1500 INTERNATIONAL UNIT, SINGLE
     Route: 030
     Dates: start: 20200806, end: 20200806

REACTIONS (4)
  - Device issue [Unknown]
  - Product preparation issue [Unknown]
  - No adverse event [Unknown]
  - Device leakage [Unknown]
